FAERS Safety Report 17706790 (Version 2)
Quarter: 2020Q4

REPORT INFORMATION
  Report Type: Spontaneous
  Country: US (occurrence: US)
  Receive Date: 20200424
  Receipt Date: 20201119
  Transmission Date: 20210113
  Serious: No
  Sender: FDA-Public Use
  Company Number: US-PFIZER INC-2014141054

PATIENT
  Age: 69 Year
  Sex: Female

DRUGS (6)
  1. LYRICA [Suspect]
     Active Substance: PREGABALIN
     Indication: MYALGIA
     Dosage: 50 MG, 1X/DAY (EVERY MORNING)
     Route: 048
     Dates: start: 201405
  2. LYRICA [Suspect]
     Active Substance: PREGABALIN
     Indication: FIBROMYALGIA
     Dosage: 600 MG, 1X/DAY (EVERY BEDTIME)
     Route: 048
  3. LYRICA [Suspect]
     Active Substance: PREGABALIN
     Indication: MYOSITIS
     Dosage: 200 MG, 1X/DAY (EVERY BEDTIME)
     Route: 048
     Dates: start: 201405
  4. LYRICA [Suspect]
     Active Substance: PREGABALIN
     Indication: FIBROMYALGIA
     Dosage: 300 MG, 1X/DAY (TAKE 1 CAPSULE BY ORAL ROUTE EVERY BEDTIME FOR NEUROPATHY)
     Route: 048
  5. LYRICA [Suspect]
     Active Substance: PREGABALIN
     Indication: NEUROPATHY PERIPHERAL
  6. LYRICA [Suspect]
     Active Substance: PREGABALIN
     Indication: AUTONOMIC NEUROPATHY
     Dosage: 100 MG, 1X/DAY (TAKE 2 CAPSULE BY ORAL ROUTE EVERY EVENING FOR NEUROPATHY-FMS)
     Route: 048

REACTIONS (8)
  - Drug hypersensitivity [Unknown]
  - Hyperhidrosis [Unknown]
  - Fall [Unknown]
  - Off label use [Unknown]
  - Eye swelling [Unknown]
  - Pain in extremity [Unknown]
  - Sleep disorder [Unknown]
  - Intentional product misuse [Unknown]
